FAERS Safety Report 14276113 (Version 1)
Quarter: 2017Q4

REPORT INFORMATION
  Report Type: Spontaneous
  Country: CZ (occurrence: CZ)
  Receive Date: 20171212
  Receipt Date: 20171212
  Transmission Date: 20180321
  Serious: Yes (Hospitalization, Other)
  Sender: FDA-Public Use
  Company Number: CZ-MYLANLABS-2017M1076396

PATIENT
  Sex: Female

DRUGS (19)
  1. DIAZEPAM. [Suspect]
     Active Substance: DIAZEPAM
     Indication: PARTIAL SEIZURES
     Dosage: UNK
     Route: 042
  2. LEVETIRACETAM. [Suspect]
     Active Substance: LEVETIRACETAM
     Indication: PARTIAL SEIZURES
     Dosage: 40 MG/KG, UNK
     Route: 042
  3. KAPIDIN [Concomitant]
     Indication: HYPERTENSION
     Dosage: UNK
     Route: 048
  4. LOKREN [Concomitant]
     Active Substance: BETAXOLOL HYDROCHLORIDE
     Indication: HYPERTENSION
     Dosage: UNK
     Route: 048
  5. TRITACE [Concomitant]
     Active Substance: RAMIPRIL
     Indication: HYPERTENSION
     Dosage: UNK
     Route: 048
  6. CEFTRIAXON [Suspect]
     Active Substance: CEFTRIAXONE
     Indication: PNEUMONIA
     Dosage: UNK
     Route: 048
  7. MILURIT [Suspect]
     Active Substance: ALLOPURINOL
     Indication: GOUT
     Dosage: UNK
     Route: 048
  8. GLURENON [Concomitant]
     Indication: PRODUCT USED FOR UNKNOWN INDICATION
     Dosage: UNK
     Route: 048
  9. EUTHYROX [Concomitant]
     Active Substance: LEVOTHYROXINE SODIUM
     Indication: HYPOTHYROIDISM
     Dosage: UNK
     Route: 048
  10. VALPROIC ACID. [Suspect]
     Active Substance: VALPROIC ACID
     Indication: PARTIAL SEIZURES
     Dosage: 30 MG/KG, UNK
     Route: 042
  11. AMOXICILLIN. [Suspect]
     Active Substance: AMOXICILLIN
     Indication: PNEUMONIA
     Dosage: UNK
     Route: 048
  12. PHENYTOIN. [Suspect]
     Active Substance: PHENYTOIN
     Indication: PARTIAL SEIZURES
     Dosage: 20 MG/KG, UNK
     Route: 042
  13. PARACETAMOL [Suspect]
     Active Substance: ACETAMINOPHEN
     Indication: PAIN
     Dosage: UNK
     Route: 048
  14. VASILIP [Concomitant]
     Active Substance: SIMVASTATIN
     Indication: HYPERCHOLESTEROLAEMIA
     Dosage: UNK
     Route: 048
  15. IBUPROFEN. [Suspect]
     Active Substance: IBUPROFEN
     Indication: PAIN
     Dosage: UNK
     Route: 048
  16. CYNT (MOXONIDIN) [Concomitant]
     Active Substance: MOXONIDINE
     Indication: HYPERTENSION
     Dosage: UNK
     Route: 048
  17. FLUCONAZOLE. [Suspect]
     Active Substance: FLUCONAZOLE
     Indication: PNEUMONIA
     Dosage: UNK
     Route: 048
  18. GODASAL [Concomitant]
     Active Substance: ASPIRIN\GLYCINE
     Indication: PRODUCT USED FOR UNKNOWN INDICATION
     Dosage: UNK
     Route: 048
  19. METAMIZOLE [Suspect]
     Active Substance: METAMIZOLE
     Indication: PAIN
     Dosage: UNK
     Route: 048

REACTIONS (1)
  - Stevens-Johnson syndrome [Recovered/Resolved with Sequelae]
